FAERS Safety Report 10191485 (Version 2)
Quarter: 2014Q2

REPORT INFORMATION
  Report Type: Report from Study
  Country: CA (occurrence: CA)
  Receive Date: 20140523
  Receipt Date: 20140523
  Transmission Date: 20141212
  Serious: Yes (Other)
  Sender: FDA-Public Use
  Company Number: PHHY2014CA037959

PATIENT
  Sex: Female

DRUGS (4)
  1. GILENYA [Suspect]
     Indication: RELAPSING-REMITTING MULTIPLE SCLEROSIS
     Dosage: 0.5 MG, QD
     Route: 048
     Dates: start: 20140305
  2. MERSYNDOL WITH CODEINE [Concomitant]
     Dosage: 1 DF, PRN
  3. PANTOPRAZOLE [Concomitant]
     Dosage: 40 MG, QD
  4. ZARAH [Concomitant]

REACTIONS (6)
  - Chest discomfort [Recovered/Resolved]
  - Abdominal discomfort [Unknown]
  - Nausea [Unknown]
  - Dyspepsia [Unknown]
  - Headache [Unknown]
  - Dyspnoea [Unknown]
